FAERS Safety Report 6648736-6 (Version None)
Quarter: 2010Q1

REPORT INFORMATION
  Report Type: 
  Country: None (occurrence: None)
  Receive Date: 20100324
  Receipt Date: 20100312
  Transmission Date: 20100710
  Serious: Yes (Hospitalization)
  Sender: FDA-Public Use
  Company Number: JP-PFIZER INC-2010032780

PATIENT
  Age: 7 Day
  Sex: Male

DRUGS (4)
  1. SILDENAFIL CITRATE [Suspect]
     Indication: PULMONARY HYPERTENSION
     Dosage: 0.4 MG, EVERY 4 HRS
     Route: 048
     Dates: start: 20100302
  2. FLOLAN [Concomitant]
     Route: 042
  3. MILRILA [Concomitant]
  4. NITRIC OXIDE [Concomitant]

REACTIONS (3)
  - BLOOD PRESSURE DECREASED [None]
  - FLUSHING [None]
  - TACHYCARDIA [None]
